FAERS Safety Report 9031167 (Version 1)
Quarter: 2013Q1

REPORT INFORMATION
  Report Type: Spontaneous
  Country: US (occurrence: US)
  Receive Date: 20130123
  Receipt Date: 20130123
  Transmission Date: 20140127
  Serious: Yes (Hospitalization, Other)
  Sender: FDA-Public Use
  Company Number: US-009507513-0811USA00819

PATIENT
  Sex: 0

DRUGS (3)
  1. FOSAMAX [Suspect]
     Indication: OSTEOPOROSIS
     Dosage: 10 MG, QD
     Route: 048
     Dates: start: 19960809, end: 20010305
  2. FOSAMAX [Suspect]
     Indication: OSTEOPENIA
     Dosage: 70 MG, QW
     Route: 048
     Dates: start: 20010306, end: 20060223
  3. FOSAMAX [Suspect]
     Dosage: 10 MG, QW
     Route: 048
     Dates: start: 200601

REACTIONS (62)
  - Femur fracture [Recovering/Resolving]
  - Intramedullary rod insertion [Unknown]
  - Breast disorder [Unknown]
  - Stress fracture [Unknown]
  - Low turnover osteopathy [Unknown]
  - Spinal osteoarthritis [Unknown]
  - Intervertebral disc protrusion [Unknown]
  - Perineurial cyst [Unknown]
  - Osteoarthritis [Not Recovered/Not Resolved]
  - Cough [Unknown]
  - Hypertension [Unknown]
  - Sinus disorder [Unknown]
  - Myositis [Unknown]
  - Oestrogen deficiency [Unknown]
  - Ovarian failure [Unknown]
  - Fatigue [Recovered/Resolved]
  - Dry eye [Unknown]
  - Depression [Unknown]
  - Nerve root compression [Not Recovered/Not Resolved]
  - Insomnia [Unknown]
  - Radiculopathy [Unknown]
  - Synovial cyst [Unknown]
  - Uterine leiomyoma [Unknown]
  - Joint effusion [Unknown]
  - Foot fracture [Unknown]
  - Hypercholesterolaemia [Unknown]
  - Vitamin D deficiency [Unknown]
  - Osteomalacia [Unknown]
  - Gait disturbance [Recovering/Resolving]
  - Coordination abnormal [Unknown]
  - Osteoarthritis [Unknown]
  - Osteopenia [Unknown]
  - Irritable bowel syndrome [Unknown]
  - Haemorrhoids [Unknown]
  - Fibrocystic breast disease [Not Recovered/Not Resolved]
  - Haemorrhoids [Unknown]
  - Pain [Unknown]
  - Depression [Unknown]
  - Ligament sprain [Unknown]
  - Muscle atrophy [Not Recovered/Not Resolved]
  - Breast mass [Unknown]
  - Fibroadenoma of breast [Unknown]
  - Arthritis [Unknown]
  - Incorrect dose administered [Unknown]
  - Dyslipidaemia [Not Recovered/Not Resolved]
  - Bundle branch block bilateral [Unknown]
  - Presyncope [Unknown]
  - Nodal osteoarthritis [Unknown]
  - Chest pain [Unknown]
  - Hepatic enzyme increased [Unknown]
  - Throat irritation [Unknown]
  - Upper-airway cough syndrome [Unknown]
  - Dysplastic naevus [Unknown]
  - Seborrhoeic keratosis [Unknown]
  - Pain in extremity [Recovering/Resolving]
  - Pain in extremity [Unknown]
  - Asthenia [Not Recovered/Not Resolved]
  - Arthralgia [Unknown]
  - Myalgia [Unknown]
  - Gastritis [Unknown]
  - Bone pain [Not Recovered/Not Resolved]
  - Gastrooesophageal reflux disease [Unknown]
